FAERS Safety Report 7079294-2 (Version None)
Quarter: 2010Q4

REPORT INFORMATION
  Report Type: 
  Country: None (occurrence: None)
  Receive Date: 20101022
  Receipt Date: 20101006
  Transmission Date: 20110411
  Serious: Yes (Other)
  Sender: FDA-Public Use
  Company Number: GER/GER/10/0016319

PATIENT
  Age: 88 Year
  Sex: Female

DRUGS (1)
  1. ALENDRON BETA (ALENDRONATE SODIUM) [Suspect]
     Indication: PRODUCT USED FOR UNKNOWN INDICATION
     Dosage: ORAL
     Route: 048

REACTIONS (1)
  - SPINAL FRACTURE [None]
